FAERS Safety Report 14763891 (Version 1)
Quarter: 2018Q2

REPORT INFORMATION
  Report Type: Report from Study
  Country: ES (occurrence: ES)
  Receive Date: 20180416
  Receipt Date: 20180416
  Transmission Date: 20180711
  Serious: Yes (Hospitalization)
  Sender: FDA-Public Use
  Company Number: ES-TEVA-2018-ES-880280

PATIENT
  Age: 55 Year
  Sex: Male

DRUGS (4)
  1. ENALAPRIL MALEATO (2142MA) [Interacting]
     Active Substance: ENALAPRIL MALEATE
     Indication: HYPERTENSION
     Route: 048
     Dates: end: 20160308
  2. ATENOLOL (356A) [Concomitant]
     Active Substance: ATENOLOL
     Indication: HYPERTENSION
     Route: 048
  3. NOLOTIL 575 MG CAPSULAS DURAS, 20 C?PSULAS [Interacting]
     Active Substance: METAMIZOLE MAGNESIUM
     Indication: MUSCULOSKELETAL PAIN
     Route: 048
     Dates: start: 20160307, end: 20160307
  4. DOXAZOSINA (2387A) [Suspect]
     Active Substance: DOXAZOSIN MESYLATE
     Indication: HYPERTENSION
     Route: 048
     Dates: end: 20160308

REACTIONS (2)
  - Acute kidney injury [Recovered/Resolved]
  - Drug interaction [Unknown]

NARRATIVE: CASE EVENT DATE: 20160308
